FAERS Safety Report 8261492-3 (Version None)
Quarter: 2012Q2

REPORT INFORMATION
  Report Type: 
  Country: None (occurrence: None)
  Receive Date: 20120405
  Receipt Date: 20120403
  Transmission Date: 20120825
  Serious: Yes (Death)
  Sender: FDA-Public Use
  Company Number: GR-PFIZER INC-2012084801

PATIENT
  Age: 60 Year
  Sex: Male

DRUGS (2)
  1. SUTENT [Suspect]
     Dosage: 37.5 MG/DAY
     Dates: start: 20110301, end: 20110801
  2. SUTENT [Suspect]
     Indication: METASTATIC RENAL CELL CARCINOMA
     Dosage: 50 MG/DAY
     Dates: start: 20091201, end: 20110201

REACTIONS (1)
  - DEATH [None]
